FAERS Safety Report 12452187 (Version 1)
Quarter: 2016Q2

REPORT INFORMATION
  Report Type: Spontaneous
  Country: IN (occurrence: IN)
  Receive Date: 20160609
  Receipt Date: 20160609
  Transmission Date: 20160815
  Serious: Yes (Other)
  Sender: FDA-Public Use
  Company Number: IN-JNJFOC-20160606837

PATIENT
  Age: 35 Year
  Sex: Male

DRUGS (6)
  1. HALOPERIDOL. [Suspect]
     Active Substance: HALOPERIDOL
     Indication: SCHIZOPHRENIA
     Dosage: DOSE TAPERED TO HALF THE PREVIOUSLY PRESCRIBED DOSE AND STOPPED COMPLETELY AFTER A PERIOD OF 10 DAYS
     Route: 065
  2. OLANZAPINE. [Suspect]
     Active Substance: OLANZAPINE
     Indication: SCHIZOPHRENIA
     Dosage: FROM LAST 3 YEARS
     Route: 065
  3. RISPERIDONE. [Suspect]
     Active Substance: RISPERIDONE
     Indication: SCHIZOPHRENIA
     Dosage: FROM LAST 3 YEARS
     Route: 065
  4. HALOPERIDOL. [Suspect]
     Active Substance: HALOPERIDOL
     Indication: SCHIZOPHRENIA
     Dosage: FROM LAST 3 YEARS
     Route: 065
  5. RISPERIDONE. [Suspect]
     Active Substance: RISPERIDONE
     Indication: SCHIZOPHRENIA
     Dosage: DOSE TAPERED TO HALF THE PREVIOUSLY PRESCRIBED DOSE AND STOPPED COMPLETELY AFTER A PERIOD OF 10 DAYS
     Route: 065
  6. TRIFLUOPERAZINE [Suspect]
     Active Substance: TRIFLUOPERAZINE\TRIFLUOPERAZINE HYDROCHLORIDE
     Indication: SCHIZOPHRENIA
     Dosage: FROM LAST 3 YEARS
     Route: 065

REACTIONS (4)
  - Type 2 diabetes mellitus [Unknown]
  - Tremor [Unknown]
  - Drug ineffective [Unknown]
  - Tardive dyskinesia [Recovering/Resolving]
